FAERS Safety Report 4332127-7 (Version None)
Quarter: 2004Q1

REPORT INFORMATION
  Report Type: 
  Country: None (occurrence: None)
  Receive Date: 20040330
  Receipt Date: 20040317
  Transmission Date: 20041129
  Serious: Yes (Hospitalization)
  Sender: FDA-Public Use
  Company Number: 04P-062-0254056-00

PATIENT
  Age: 70 Year
  Sex: Female

DRUGS (2)
  1. BIAXIN [Suspect]
     Indication: SINOBRONCHITIS
     Dosage: 250 MG, 2 IN 1 D, PER ORAL
     Route: 048
     Dates: start: 20040220, end: 20040224
  2. PHENPROCOUMON (PHENPROCOUMON) [Suspect]
     Indication: AORTIC VALVE REPLACEMENT
     Dosage: PER ORAL
     Route: 048

REACTIONS (3)
  - DRUG INTERACTION [None]
  - HAEMATURIA [None]
  - SINOBRONCHITIS [None]
